FAERS Safety Report 12103986 (Version 2)
Quarter: 2016Q1

REPORT INFORMATION
  Report Type: Spontaneous
  Country: FI (occurrence: FI)
  Receive Date: 20160223
  Receipt Date: 20160311
  Transmission Date: 20160526
  Serious: Yes (Other)
  Sender: FDA-Public Use
  Company Number: FI-ROCHE-1713353

PATIENT
  Age: 2 Year
  Sex: Male

DRUGS (3)
  1. TAMIFLU [Suspect]
     Active Substance: OSELTAMIVIR PHOSPHATE
     Indication: ANTIVIRAL PROPHYLAXIS
     Dosage: 6 MG/ML
     Route: 048
     Dates: start: 20160206, end: 20160209
  2. PANADOL (FINLAND) [Concomitant]
  3. PRONAXEN [Concomitant]
     Active Substance: NAPROXEN

REACTIONS (3)
  - Sleep terror [Unknown]
  - Ear infection [Unknown]
  - Abnormal behaviour [Unknown]

NARRATIVE: CASE EVENT DATE: 20160207
